FAERS Safety Report 6844417-4 (Version None)
Quarter: 2010Q3

REPORT INFORMATION
  Report Type: 
  Country: None (occurrence: None)
  Receive Date: 20100713
  Receipt Date: 20100702
  Transmission Date: 20110219
  Serious: Yes (Other)
  Sender: FDA-Public Use
  Company Number: 10-001020

PATIENT
  Sex: Female

DRUGS (1)
  1. LOESTRIN 24 FE [Suspect]
     Dosage: 20/1000 UG TABLETS DAILY, ORAL
     Route: 048

REACTIONS (3)
  - DYSARTHRIA [None]
  - HYPOAESTHESIA [None]
  - MIGRAINE [None]
